FAERS Safety Report 6355111-0 (Version None)
Quarter: 2009Q3

REPORT INFORMATION
  Report Type: 
  Country: None (occurrence: None)
  Receive Date: 20090909
  Receipt Date: 20090828
  Transmission Date: 20100115
  Serious: Yes (Hospitalization, Other)
  Sender: FDA-Public Use
  Company Number: GRP07000041

PATIENT
  Age: 69 Year
  Sex: Male
  Weight: 92 kg

DRUGS (8)
  1. ACTONEL [Suspect]
     Indication: OSTEOPOROSIS
     Dosage: 5 MG, 1/DAY, ORAL
     Route: 048
     Dates: start: 20050101
  2. CALCIUM AL (CALCIUM CARBONATE) [Concomitant]
  3. VIGANTOLETTEN (COLECALCIFEROL) [Concomitant]
  4. NATRILIX /00340101/(INDAPAMIDE) [Concomitant]
  5. CARVEDILOL [Concomitant]
  6. SIMVABETA (SIMVASTATIN) [Concomitant]
  7. ASS (ACETYSALICYLIC ACID) [Concomitant]
  8. ALLOPURINOL [Concomitant]

REACTIONS (3)
  - GASTRIC CANCER [None]
  - GASTRIC NEOPLASM [None]
  - GASTROINTESTINAL STROMAL TUMOUR [None]
